FAERS Safety Report 11848160 (Version 2)
Quarter: 2021Q1

REPORT INFORMATION
  Report Type: Spontaneous
  Country: FR (occurrence: FR)
  Receive Date: 20151217
  Receipt Date: 20210118
  Transmission Date: 20210419
  Serious: Yes (Other)
  Sender: FDA-Public Use
  Company Number: PHHY2015FR163848

PATIENT
  Age: 25 Year
  Sex: Male

DRUGS (9)
  1. RISPERIDONE. [Suspect]
     Active Substance: RISPERIDONE
     Indication: AGGRESSION
  2. ZUCLOPENTHIXOL [Suspect]
     Active Substance: ZUCLOPENTHIXOL
     Indication: AGITATION
     Dosage: UNK
     Route: 030
  3. LEVOMEPROMAZINE [Suspect]
     Active Substance: LEVOMEPROMAZINE
     Indication: PSYCHOTIC DISORDER
     Dosage: 300 MG, QD
     Route: 048
  4. LEVOMEPROMAZINE [Suspect]
     Active Substance: LEVOMEPROMAZINE
     Indication: AGGRESSION
  5. RISPERIDONE. [Suspect]
     Active Substance: RISPERIDONE
     Indication: AGITATION
  6. LEVOMEPROMAZINE [Suspect]
     Active Substance: LEVOMEPROMAZINE
     Indication: AGITATION
  7. RISPERIDONE. [Suspect]
     Active Substance: RISPERIDONE
     Indication: PSYCHOTIC DISORDER
     Dosage: 4 MG, QD
     Route: 048
  8. LOXAPINE. [Suspect]
     Active Substance: LOXAPINE
     Indication: AGITATION
     Dosage: 400 MG, QD
     Route: 065
  9. LOXAPINE. [Suspect]
     Active Substance: LOXAPINE
     Indication: AGGRESSION

REACTIONS (1)
  - Deep vein thrombosis [Recovering/Resolving]
